FAERS Safety Report 9395713 (Version 1)
Quarter: 2013Q3

REPORT INFORMATION
  Report Type: Spontaneous
  Country: TR (occurrence: TR)
  Receive Date: 20130711
  Receipt Date: 20130711
  Transmission Date: 20140515
  Serious: Yes (Death, Hospitalization)
  Sender: FDA-Public Use
  Company Number: TR-ALLERGAN-1310179US

PATIENT
  Age: 74 Year
  Sex: Female

DRUGS (11)
  1. GANFORT EYE DROPS [Suspect]
     Indication: GLAUCOMA
     Dosage: UNK UNK, QD
     Dates: start: 20130701
  2. REFRESH UNIT DOSE [Concomitant]
     Indication: DRY EYE
  3. REFRESH UNIT DOSE [Concomitant]
     Indication: CATARACT OPERATION
  4. COMBIVENT [Concomitant]
     Indication: PRODUCT USED FOR UNKNOWN INDICATION
  5. VENTOFOR [Concomitant]
     Indication: PRODUCT USED FOR UNKNOWN INDICATION
  6. TEOKAP [Concomitant]
     Indication: PRODUCT USED FOR UNKNOWN INDICATION
  7. PULMICORT [Concomitant]
     Indication: PRODUCT USED FOR UNKNOWN INDICATION
  8. LIPOTEARS [Concomitant]
     Indication: DRY EYE
  9. LIPOTEARS [Concomitant]
     Indication: CATARACT OPERATION
  10. EMADINE [Concomitant]
     Indication: DRY EYE
  11. EMADINE [Concomitant]
     Indication: CATARACT OPERATION

REACTIONS (2)
  - Cardio-respiratory arrest [Fatal]
  - Dizziness [Unknown]
